FAERS Safety Report 6331856-3 (Version None)
Quarter: 2009Q3

REPORT INFORMATION
  Report Type: 
  Country: None (occurrence: None)
  Receive Date: 20090826
  Receipt Date: 20090812
  Transmission Date: 20100115
  Serious: Yes (Other)
  Sender: FDA-Public Use
  Company Number: 2009AP003284

PATIENT
  Age: 54 Year
  Sex: Female

DRUGS (5)
  1. PAROXETINE HCL [Suspect]
     Indication: ANXIETY
     Dosage: 40 MG; QD; PO
     Route: 048
     Dates: start: 20090725
  2. GUANFACINE HYDROCHLORIDE [Concomitant]
  3. GABAPENTIN [Concomitant]
  4. LOVASTATIN [Concomitant]
  5. NAPROXEN [Concomitant]

REACTIONS (5)
  - ADVERSE EVENT [None]
  - ANXIETY [None]
  - FEELING ABNORMAL [None]
  - POSTMENOPAUSAL HAEMORRHAGE [None]
  - PRODUCT QUALITY ISSUE [None]
